FAERS Safety Report 5044794-3 (Version None)
Quarter: 2006Q2

REPORT INFORMATION
  Report Type: 
  Country: None (occurrence: None)
  Receive Date: 20060601
  Receipt Date: 20060324
  Transmission Date: 20061013
  Serious: No
  Sender: FDA-Public Use
  Company Number: 2006-BP-00442BP(1)

PATIENT
  Age: 65 Year
  Sex: Female

DRUGS (5)
  1. SPIRIVA [Suspect]
     Indication: CHRONIC OBSTRUCTIVE PULMONARY DISEASE
     Dosage: 18 MCG (18 MCG, 1 IN 1 D), IH
     Route: 055
  2. SPIRIVA [Suspect]
  3. COZAAR [Concomitant]
  4. ZOCOR [Concomitant]
  5. SINGULAIR [Concomitant]

REACTIONS (2)
  - DYSPNOEA [None]
  - SENSORY LOSS [None]
